FAERS Safety Report 7962988-1 (Version None)
Quarter: 2011Q4

REPORT INFORMATION
  Report Type: 
  Country: None (occurrence: None)
  Receive Date: 20111207
  Receipt Date: 20111129
  Transmission Date: 20120403
  Serious: Yes (Hospitalization)
  Sender: FDA-Public Use
  Company Number: US-ASTRAZENECA-2011SE72302

PATIENT
  Age: 13 Year
  Sex: Male
  Weight: 56.8 kg

DRUGS (7)
  1. TYVASO [Suspect]
     Dosage: 18-54 MICROGRAMS, TID
     Route: 055
  2. LITHIUM [Suspect]
     Route: 065
  3. ABILIFY [Suspect]
     Route: 065
  4. LAMICTAL [Suspect]
     Route: 065
  5. LETAIRIS [Concomitant]
  6. TYVASO [Suspect]
     Indication: COR PULMONALE CHRONIC
     Dosage: 18-54 MICROGRAMS, QID
     Route: 055
     Dates: start: 20110318
  7. SEROQUEL [Suspect]
     Route: 048

REACTIONS (4)
  - DIZZINESS [None]
  - ASPERGER'S DISORDER [None]
  - BIPOLAR DISORDER [None]
  - SYNCOPE [None]
